FAERS Safety Report 19352158 (Version 2)
Quarter: 2021Q2

REPORT INFORMATION
  Report Type: Report from Study
  Country: GB (occurrence: GB)
  Receive Date: 20210601
  Receipt Date: 20210628
  Transmission Date: 20210717
  Serious: Yes (Hospitalization, Other)
  Sender: FDA-Public Use
  Company Number: GB-BRISTOL-MYERS SQUIBB COMPANY-BMS-2021-050527

PATIENT
  Age: 71 Year
  Sex: Male
  Weight: 109 kg

DRUGS (15)
  1. LIDOCAINE. [Concomitant]
     Active Substance: LIDOCAINE
     Indication: PAIN MANAGEMENT
     Dosage: 1 PATCH ONCE A DAY
     Route: 061
     Dates: start: 20210521
  2. OMEPRAZOLE. [Concomitant]
     Active Substance: OMEPRAZOLE
     Indication: GASTROOESOPHAGEAL REFLUX DISEASE
     Dosage: 20 MILLIGRAM, QD
     Route: 048
  3. DOCUSATE SODIUM. [Concomitant]
     Active Substance: DOCUSATE SODIUM
     Indication: CONSTIPATION
     Dosage: 200 MILLIGRAM, BID
     Route: 048
     Dates: start: 20210515
  4. ENOXAPARIN [Concomitant]
     Active Substance: ENOXAPARIN
     Indication: PROPHYLAXIS
     Dosage: 60 MILLIGRAM, QD
     Route: 058
     Dates: start: 20210517, end: 20210526
  5. PARACETAMOL [Concomitant]
     Active Substance: ACETAMINOPHEN
     Indication: PAIN MANAGEMENT
     Dosage: 1 G WHEN REQUIRED UP TO 4 TIMES A DAY
     Route: 048
     Dates: start: 20210515
  6. FINASTERIDE. [Concomitant]
     Active Substance: FINASTERIDE
     Indication: BENIGN PROSTATIC HYPERPLASIA
     Dosage: 5 MILLIGRAM, QD
     Route: 048
  7. COCODAMOL [Concomitant]
     Active Substance: ACETAMINOPHEN\CODEINE PHOSPHATE
     Indication: PRODUCT USED FOR UNKNOWN INDICATION
     Dosage: 30/500 MG ONCE EVERY DAY
     Route: 065
  8. NIVOLUMAB [Suspect]
     Active Substance: NIVOLUMAB
     Indication: PLEURAL MESOTHELIOMA MALIGNANT
     Dosage: 360 MILLIGRAM, Q3WK
     Route: 042
     Dates: start: 20210513, end: 20210523
  9. TAMSULOSIN [Concomitant]
     Active Substance: TAMSULOSIN
     Indication: BENIGN PROSTATIC HYPERPLASIA
     Dosage: 400 MICROGRAM, QD
     Route: 048
  10. CYCLIZINE [Concomitant]
     Active Substance: CYCLIZINE
     Indication: PRODUCT USED FOR UNKNOWN INDICATION
     Route: 065
  11. ATORVASTATIN [Concomitant]
     Active Substance: ATORVASTATIN
     Indication: HYPERCHOLESTEROLAEMIA
     Dosage: 20 MILLIGRAM, QD ON NIGHT
     Route: 048
  12. MORPHINE SULPHATE [Concomitant]
     Active Substance: MORPHINE SULFATE
     Indication: PAIN MANAGEMENT
     Dosage: 5 MG WHEN REQUIRED
     Route: 048
     Dates: start: 20210521
  13. IPILIMUMAB [Suspect]
     Active Substance: IPILIMUMAB
     Indication: PLEURAL MESOTHELIOMA MALIGNANT
     Dosage: 110 MILLIGRAM, Q6WK
     Route: 042
     Dates: start: 20210513, end: 20210523
  14. NYSTATIN. [Concomitant]
     Active Substance: NYSTATIN
     Indication: ORAL CANDIDIASIS
     Dosage: 1 MILLILITER, QID
     Route: 048
     Dates: start: 20210517
  15. PREGABALIN. [Concomitant]
     Active Substance: PREGABALIN
     Indication: PAIN MANAGEMENT
     Dosage: 200 MILLIGRAM, TID
     Route: 048
     Dates: start: 20210515

REACTIONS (1)
  - Immune-mediated lung disease [Recovered/Resolved]

NARRATIVE: CASE EVENT DATE: 20210515
